FAERS Safety Report 25898382 (Version 2)
Quarter: 2025Q4

REPORT INFORMATION
  Report Type: Spontaneous
  Country: US (occurrence: US)
  Receive Date: 20251009
  Receipt Date: 20251020
  Transmission Date: 20260118
  Serious: No
  Sender: SANDOZ
  Company Number: US-SANDOZ-SDZ2025US072361

PATIENT
  Sex: Female

DRUGS (1)
  1. RECLAST [Suspect]
     Active Substance: ZOLEDRONIC ACID
     Indication: Product used for unknown indication
     Dosage: UNK
     Route: 065

REACTIONS (1)
  - Hypersensitivity [Unknown]
